FAERS Safety Report 18395230 (Version 2)
Quarter: 2020Q4

REPORT INFORMATION
  Report Type: Spontaneous
  Country: PL (occurrence: PL)
  Receive Date: 20201017
  Receipt Date: 20201105
  Transmission Date: 20210114
  Serious: Yes (Other)
  Sender: FDA-Public Use
  Company Number: PL-ROCHE-2695423

PATIENT
  Age: 48 Year
  Sex: Female
  Weight: 88 kg

DRUGS (2)
  1. KADCYLA [Suspect]
     Active Substance: ADO-TRASTUZUMAB EMTANSINE
     Indication: BREAST CANCER METASTATIC
     Route: 065
     Dates: start: 202002
  2. DEXAVEN [Concomitant]
     Active Substance: DEXAMETHASONE

REACTIONS (5)
  - Musculoskeletal pain [Unknown]
  - Transaminases increased [Unknown]
  - Stress fracture [Unknown]
  - Fatigue [Unknown]
  - Peripheral swelling [Unknown]
